FAERS Safety Report 9117310 (Version 1)
Quarter: 2013Q1

REPORT INFORMATION
  Report Type: Spontaneous
  Country: US (occurrence: US)
  Receive Date: 20130208
  Receipt Date: 20130208
  Transmission Date: 20140127
  Serious: Yes (Other)
  Sender: FDA-Public Use
  Company Number: US-RB-049497-13

PATIENT
  Age: 40 Year
  Sex: Male

DRUGS (3)
  1. MUCINEX DM MAXIMUM STRENGTH (GUAIFENESIN) [Suspect]
     Indication: PRODUCT USED FOR UNKNOWN INDICATION
     Route: 048
     Dates: start: 20130123
  2. MUCINEX DM MAXIMUM STRENGTH [Suspect]
  3. ASPIRIN [Concomitant]
     Indication: PRODUCT USED FOR UNKNOWN INDICATION

REACTIONS (2)
  - Blood glucose increased [Not Recovered/Not Resolved]
  - Somnolence [Not Recovered/Not Resolved]
